FAERS Safety Report 14627620 (Version 1)
Quarter: 2018Q1

REPORT INFORMATION
  Report Type: Spontaneous
  Country: US (occurrence: US)
  Receive Date: 20180312
  Receipt Date: 20180312
  Transmission Date: 20180509
  Serious: Yes (Other)
  Sender: FDA-Public Use
  Company Number: US-PFIZER INC-2018093846

PATIENT
  Age: 64 Year
  Sex: Female

DRUGS (2)
  1. ZOLOFT [Suspect]
     Active Substance: SERTRALINE HYDROCHLORIDE
     Dosage: UNK, 1X/DAY
     Route: 048
  2. ZYPREXA [Suspect]
     Active Substance: OLANZAPINE
     Dosage: UNK

REACTIONS (5)
  - Infertility [Recovering/Resolving]
  - Obesity [Recovering/Resolving]
  - Cerebral disorder [Recovering/Resolving]
  - Feeling abnormal [Unknown]
  - Drooling [Recovering/Resolving]
